FAERS Safety Report 13875800 (Version 1)
Quarter: 2017Q3

REPORT INFORMATION
  Report Type: Spontaneous
  Country: JP (occurrence: JP)
  Receive Date: 20170817
  Receipt Date: 20170817
  Transmission Date: 20171127
  Serious: Yes (Other)
  Sender: FDA-Public Use
  Company Number: JP-LUPIN PHARMACEUTICALS INC.-2017-01531

PATIENT
  Age: 69 Year
  Sex: Male

DRUGS (6)
  1. LEVOFLOXACIN TABLETS [Suspect]
     Active Substance: LEVOFLOXACIN
     Indication: STAPHYLOCOCCAL INFECTION
  2. PIPERACILLIN [Concomitant]
     Active Substance: PIPERACILLIN
     Indication: STAPHYLOCOCCAL INFECTION
  3. VANCOMYCIN [Concomitant]
     Active Substance: VANCOMYCIN
     Indication: STAPHYLOCOCCAL INFECTION
  4. PIPERACILLIN [Concomitant]
     Active Substance: PIPERACILLIN
     Indication: BACTEROIDES INFECTION
     Dosage: 2 G, BID
     Route: 042
  5. VANCOMYCIN [Concomitant]
     Active Substance: VANCOMYCIN
     Indication: BACTEROIDES INFECTION
     Dosage: 0.5 G, UNK, 3 TIMES A WEEK
  6. LEVOFLOXACIN TABLETS [Suspect]
     Active Substance: LEVOFLOXACIN
     Indication: BACTEROIDES INFECTION
     Dosage: 100 MG, QD
     Route: 048

REACTIONS (1)
  - Drug-induced liver injury [Unknown]
